APPROVED DRUG PRODUCT: HALOPERIDOL
Active Ingredient: HALOPERIDOL LACTATE
Strength: EQ 5MG BASE/ML
Dosage Form/Route: INJECTABLE;INJECTION
Application: A072517 | Product #001
Applicant: MARSAM PHARMACEUTICALS LLC
Approved: Feb 25, 1993 | RLD: No | RS: No | Type: DISCN